FAERS Safety Report 7795063 (Version 3)
Quarter: 2014Q1

REPORT INFORMATION
  Report Type: Spontaneous
  Country: US (occurrence: US)
  Receive Date: 20110201
  Receipt Date: 20140109
  Transmission Date: 20141002
  Serious: Yes (Hospitalization, Other)
  Sender: FDA-Public Use
  Company Number: US-BAYER-2011-009925

PATIENT
  Age: 31 Year
  Sex: Female
  Weight: 63.49 kg

DRUGS (4)
  1. YAZ [Suspect]
     Indication: CONTRACEPTION
     Dosage: UNK
     Dates: start: 200707, end: 200810
  2. ZOLOFT [Concomitant]
     Dosage: UNK
     Route: 048
     Dates: start: 200609, end: 200710
  3. PRILOSEC [Concomitant]
     Indication: GASTRITIS
     Dosage: 20 MG, QD
     Dates: start: 20071008
  4. DICYCLOMINE [Concomitant]
     Indication: GASTRITIS
     Dosage: 20 MG, HS
     Route: 048
     Dates: start: 20071008

REACTIONS (5)
  - Gallbladder disorder [None]
  - Cholecystitis chronic [None]
  - Injury [None]
  - Pain [None]
  - Emotional distress [None]
